FAERS Safety Report 7414331-4 (Version None)
Quarter: 2011Q2

REPORT INFORMATION
  Report Type: 
  Country: None (occurrence: None)
  Receive Date: 20110414
  Receipt Date: 20110330
  Transmission Date: 20111010
  Serious: Yes (Hospitalization)
  Sender: FDA-Public Use
  Company Number: BE-JNJFOC-20101208314

PATIENT
  Age: 42 Year
  Sex: Male

DRUGS (2)
  1. ANTI-HYPERCHOLESTEROLAEMIA [Concomitant]
     Indication: HYPERCHOLESTEROLAEMIA
  2. REMICADE [Suspect]
     Indication: CROHN'S DISEASE
     Route: 042

REACTIONS (2)
  - ACUTE CORONARY SYNDROME [None]
  - ARTERIOSCLEROSIS [None]
